FAERS Safety Report 17674065 (Version 6)
Quarter: 2022Q2

REPORT INFORMATION
  Report Type: Report from Study
  Country: US (occurrence: US)
  Receive Date: 20200416
  Receipt Date: 20220429
  Transmission Date: 20220721
  Serious: No
  Sender: FDA-Public Use
  Company Number: NVSC2020US100435

PATIENT
  Sex: Female

DRUGS (2)
  1. GILENYA [Suspect]
     Active Substance: FINGOLIMOD HYDROCHLORIDE
     Indication: Relapsing multiple sclerosis
     Dosage: 0.5 MG, QD
     Route: 048
     Dates: start: 2011
  2. GILENYA [Suspect]
     Active Substance: FINGOLIMOD HYDROCHLORIDE
     Indication: Relapsing-remitting multiple sclerosis
     Dosage: 0.5 MG, QD
     Route: 048

REACTIONS (9)
  - Hepatic enzyme increased [Unknown]
  - Dysstasia [Unknown]
  - Pain [Unknown]
  - Feeling abnormal [Unknown]
  - Drug interaction [Unknown]
  - Joint injury [Unknown]
  - Fatigue [Unknown]
  - Asthenia [Recovering/Resolving]
  - Myalgia [Unknown]
